FAERS Safety Report 15420242 (Version 1)
Quarter: 2018Q3

REPORT INFORMATION
  Report Type: Spontaneous
  Country: DE (occurrence: DE)
  Receive Date: 20180924
  Receipt Date: 20180924
  Transmission Date: 20181010
  Serious: Yes (Other)
  Sender: FDA-Public Use
  Company Number: DE-MYLANLABS-2018M1030651

PATIENT
  Age: 56 Year
  Sex: Female
  Weight: 59 kg

DRUGS (12)
  1. L?THYROXINE [Concomitant]
     Active Substance: LEVOTHYROXINE
     Indication: AUTOIMMUNE HYPOTHYROIDISM
     Dosage: 50 ?G, QD
  2. L?THYROXINE [Concomitant]
     Active Substance: LEVOTHYROXINE
     Indication: HYPOTHYROIDISM
  3. PROGESTAN [Suspect]
     Active Substance: PROGESTERONE
     Indication: PREVENTION OF ENDOMETRIAL HYPERPLASIA
     Dosage: 1 DF, QD
     Route: 048
     Dates: start: 2012, end: 201701
  4. ESTRADIOL. [Suspect]
     Active Substance: ESTRADIOL
     Indication: HORMONE REPLACEMENT THERAPY
     Dosage: 2 DF, QD (2 PUFFS DAILY)
     Route: 062
     Dates: start: 2012, end: 201701
  5. ESTRADIOL. [Suspect]
     Active Substance: ESTRADIOL
     Dosage: 1 DF, QD (1 PUFF DAILY)
     Route: 062
     Dates: start: 201701, end: 201705
  6. PROGESTAN [Suspect]
     Active Substance: PROGESTERONE
     Dosage: 1 DF, (EVERY SECOND EVENING)
     Route: 048
     Dates: start: 201701, end: 201705
  7. ESTRADIOL. [Suspect]
     Active Substance: ESTRADIOL
     Dosage: 2 DF, QD (AT 2 PUFFS DAILY)
     Route: 062
     Dates: start: 201711, end: 20180119
  8. LERCANIDIPINE [Concomitant]
     Active Substance: LERCANIDIPINE
     Indication: HYPERTENSION
     Dosage: UNK
     Route: 065
     Dates: end: 2018
  9. PASCOFLAIR [Concomitant]
     Indication: MENOPAUSAL DISORDER
     Dosage: UNK
  10. PROGESTAN [Suspect]
     Active Substance: PROGESTERONE
     Dosage: 1 DF, QD
     Dates: start: 201711, end: 20180119
  11. PROGESTAN [Suspect]
     Active Substance: PROGESTERONE
     Dosage: 1 DF, QOD
     Route: 048
  12. RAMIPRIL. [Concomitant]
     Active Substance: RAMIPRIL
     Indication: HYPERTENSION
     Dosage: UNK

REACTIONS (7)
  - Gamma-glutamyltransferase increased [Not Recovered/Not Resolved]
  - Blood lactate dehydrogenase increased [Not Recovered/Not Resolved]
  - Asthenia [Recovered/Resolved]
  - Thrombocytopenia [Not Recovered/Not Resolved]
  - Blood alkaline phosphatase increased [Not Recovered/Not Resolved]
  - Transaminases increased [Not Recovered/Not Resolved]
  - Off label use [Unknown]

NARRATIVE: CASE EVENT DATE: 2017
